FAERS Safety Report 20952331 (Version 2)
Quarter: 2022Q3

REPORT INFORMATION
  Report Type: Spontaneous
  Country: US (occurrence: US)
  Receive Date: 20220613
  Receipt Date: 20220714
  Transmission Date: 20221027
  Serious: No
  Sender: FDA-Public Use
  Company Number: US-PFIZER INC-202200823251

PATIENT
  Age: 66 Year
  Sex: Male
  Weight: 78 kg

DRUGS (1)
  1. PAXLOVID [Suspect]
     Active Substance: NIRMATRELVIR\RITONAVIR
     Indication: COVID-19 treatment
     Dosage: ALL 6 PILLS
     Dates: start: 20220609

REACTIONS (1)
  - Incorrect dosage administered [Unknown]

NARRATIVE: CASE EVENT DATE: 20220609
